FAERS Safety Report 8623321-5 (Version None)
Quarter: 2012Q3

REPORT INFORMATION
  Report Type: 
  Country: None (occurrence: None)
  Receive Date: 20120824
  Receipt Date: 20120824
  Transmission Date: 20120928
  Serious: Yes (Other)
  Sender: FDA-Public Use
  Company Number: None

PATIENT
  Age: 63 Year
  Sex: Female
  Weight: 113.3993 kg

DRUGS (1)
  1. PLAQUENIL [Suspect]
     Indication: SYSTEMIC LUPUS ERYTHEMATOSUS
     Dosage: 200 MG  BID ORAL
     Route: 048
     Dates: start: 20110501, end: 20120101

REACTIONS (3)
  - HEADACHE [None]
  - DYSPEPSIA [None]
  - PRODUCT SUBSTITUTION ISSUE [None]
